FAERS Safety Report 9714314 (Version 2)
Quarter: 2013Q4

REPORT INFORMATION
  Report Type: Spontaneous
  Country: US (occurrence: US)
  Receive Date: 20131126
  Receipt Date: 20131126
  Transmission Date: 20140711
  Serious: No
  Sender: FDA-Public Use
  Company Number: US-GALDERMA-US-GDP-12415068

PATIENT
  Age: 80 Year
  Sex: Male
  Weight: 132 kg

DRUGS (9)
  1. CAPEX SHAMPOO (FLUOCINOLONE ACETONIDE) TOPICAL SHAMPOO, 0.01% [Suspect]
     Indication: SEBORRHOEIC DERMATITIS
     Route: 061
     Dates: start: 20120912
  2. CAPEX SHAMPOO (FLUOCINOLONE ACETONIDE) TOPICAL SHAMPOO, 0.01% [Suspect]
     Indication: PSORIASIS
     Route: 061
     Dates: start: 2002, end: 20120912
  3. METFORMIN [Concomitant]
     Route: 048
     Dates: start: 201005
  4. RAMIPRIL [Concomitant]
     Route: 048
     Dates: start: 200908
  5. SERTRALINE [Concomitant]
     Route: 019
     Dates: start: 200704
  6. HCTZ [Concomitant]
     Route: 048
     Dates: start: 200704
  7. PROPRANOLOL [Concomitant]
     Route: 048
     Dates: start: 201011
  8. SIMVASTATIN [Concomitant]
     Route: 048
     Dates: start: 200711
  9. TOPIRAMATE [Concomitant]
     Route: 048
     Dates: start: 201001

REACTIONS (3)
  - Alopecia [Not Recovered/Not Resolved]
  - Hair texture abnormal [Not Recovered/Not Resolved]
  - Drug dispensing error [Unknown]
